FAERS Safety Report 16205866 (Version 1)
Quarter: 2019Q2

REPORT INFORMATION
  Report Type: Other
  Country: GR (occurrence: GR)
  Receive Date: 20190417
  Receipt Date: 20190417
  Transmission Date: 20190711
  Serious: Yes (Other)
  Sender: FDA-Public Use
  Company Number: GR-ASTELLAS-2019US016091

PATIENT
  Age: 47 Year
  Sex: Female
  Weight: 65 kg

DRUGS (1)
  1. VESICARE [Suspect]
     Active Substance: SOLIFENACIN SUCCINATE
     Indication: POLLAKIURIA
     Route: 065
     Dates: start: 20130514, end: 20130529

REACTIONS (11)
  - Presyncope [Unknown]
  - Confusional state [Unknown]
  - Abdominal distension [Unknown]
  - Fatigue [Unknown]
  - Vomiting [Unknown]
  - Hallucination [Unknown]
  - Presyncope [Unknown]
  - Retching [Unknown]
  - Asthenia [Unknown]
  - Asthenia [Unknown]
  - Disorientation [Unknown]

NARRATIVE: CASE EVENT DATE: 201305
